FAERS Safety Report 22077103 (Version 1)
Quarter: 2023Q1

REPORT INFORMATION
  Report Type: Spontaneous
  Country: US (occurrence: None)
  Receive Date: 20230309
  Receipt Date: 20230309
  Transmission Date: 20230418
  Serious: No
  Sender: FDA-Public Use
  Company Number: 2023A046989

PATIENT
  Sex: Male
  Weight: 65.3 kg

DRUGS (1)
  1. FASENRA [Suspect]
     Active Substance: BENRALIZUMAB
     Indication: Pneumonia
     Dosage: UNKNOWN
     Route: 058

REACTIONS (4)
  - Illness [Unknown]
  - Lung disorder [Unknown]
  - Pneumonia [Unknown]
  - Gait disturbance [Unknown]
